FAERS Safety Report 14301427 (Version 1)
Quarter: 2017Q4

REPORT INFORMATION
  Report Type: Spontaneous
  Country: IT (occurrence: IT)
  Receive Date: 20171219
  Receipt Date: 20171219
  Transmission Date: 20180321
  Serious: Yes (Death)
  Sender: FDA-Public Use
  Company Number: IT-CIPLA LTD.-2017IT28017

PATIENT

DRUGS (9)
  1. LENALIDOMIDE [Concomitant]
     Active Substance: LENALIDOMIDE
     Dosage: UNK
     Route: 065
  2. LASIX [Concomitant]
     Active Substance: FUROSEMIDE
     Dosage: UNK
     Route: 065
  3. LANSOPRAZOLE. [Concomitant]
     Active Substance: LANSOPRAZOLE
     Dosage: UNK
     Route: 065
  4. ZOVIRAX [Concomitant]
     Active Substance: ACYCLOVIR
     Dosage: 1 DF, UNK
     Route: 065
  5. WARFARIN [Suspect]
     Active Substance: WARFARIN
     Indication: ATRIAL FIBRILLATION
     Dosage: 1 DF, PRN
     Route: 048
     Dates: start: 20170101, end: 20170925
  6. LEVOFLOXACIN. [Suspect]
     Active Substance: LEVOFLOXACIN
     Indication: PRODUCT USED FOR UNKNOWN INDICATION
     Dosage: 1 DF, PER DAY
     Route: 048
     Dates: start: 20170915, end: 20170920
  7. LORTAAN [Concomitant]
     Active Substance: LOSARTAN POTASSIUM
     Dosage: 0.5 DF, UNK
     Route: 065
  8. SOLDESAM [Concomitant]
     Active Substance: DEXAMETHASONE
     Dosage: 1 DF, UNK
     Route: 065
  9. LYRICA [Concomitant]
     Active Substance: PREGABALIN
     Dosage: UNK
     Route: 065

REACTIONS (6)
  - Cardio-respiratory arrest [Fatal]
  - Pallor [Fatal]
  - Hypovolaemic shock [Fatal]
  - Abdominal pain upper [Fatal]
  - Haematemesis [Fatal]
  - Bradycardia [Fatal]

NARRATIVE: CASE EVENT DATE: 20170925
